FAERS Safety Report 17792176 (Version 2)
Quarter: 2021Q1

REPORT INFORMATION
  Report Type: Spontaneous
  Country: US (occurrence: US)
  Receive Date: 20200515
  Receipt Date: 20210122
  Transmission Date: 20210419
  Serious: No
  Sender: FDA-Public Use
  Company Number: US-TEVA-2020-US-1235194

PATIENT
  Sex: Male

DRUGS (6)
  1. TEVA BUPRENORPHINE TDS [Suspect]
     Active Substance: BUPRENORPHINE
     Indication: ARTHRALGIA
     Dosage: 20 MCG/HR
     Route: 062
     Dates: start: 20191014, end: 20201104
  2. TEVA BUPRENORPHINE TDS [Suspect]
     Active Substance: BUPRENORPHINE
     Indication: SCAPHOLUNATE DISSOCIATION
  3. TEVA BUPRENORPHINE TDS [Suspect]
     Active Substance: BUPRENORPHINE
     Indication: PAIN IN EXTREMITY
     Dosage: 15 MCG / HR
     Route: 062
     Dates: start: 20191014, end: 20201204
  4. TEVA BUPRENORPHINE TDS [Suspect]
     Active Substance: BUPRENORPHINE
     Indication: ARTHRALGIA
     Dosage: 10 MCG / HR
     Route: 062
  5. TEVA BUPRENORPHINE TDS [Suspect]
     Active Substance: BUPRENORPHINE
     Indication: PAIN
  6. PERCOCET 10 MG/ 325 MG [Concomitant]
     Dosage: 10 MG/ 325 MG
     Route: 065

REACTIONS (2)
  - Product adhesion issue [Unknown]
  - Drug ineffective [Unknown]
